FAERS Safety Report 9695241 (Version 1)
Quarter: 2013Q4

REPORT INFORMATION
  Report Type: Spontaneous
  Country: FR (occurrence: FR)
  Receive Date: 20131119
  Receipt Date: 20131119
  Transmission Date: 20140711
  Serious: Yes (Other)
  Sender: FDA-Public Use
  Company Number: FR-ROCHE-1305757

PATIENT
  Age: 66 Year
  Sex: Male

DRUGS (4)
  1. MYCOPHENOLATE MOFETIL [Suspect]
     Indication: LIVER TRANSPLANT
     Route: 065
  2. PREDNISOLONE [Concomitant]
     Route: 065
  3. TACROLIMUS [Concomitant]
  4. URSODEOXYCHOLIC ACID [Concomitant]
     Route: 065

REACTIONS (1)
  - Hyperoxaluria [Unknown]
